FAERS Safety Report 12522804 (Version 3)
Quarter: 2016Q3

REPORT INFORMATION
  Report Type: Report from Study
  Country: US (occurrence: US)
  Receive Date: 20160701
  Receipt Date: 20160930
  Transmission Date: 20161109
  Serious: Yes (Hospitalization, Other)
  Sender: FDA-Public Use
  Company Number: US-BRISTOL-MYERS SQUIBB COMPANY-BMS-2016-048198

PATIENT
  Age: 64 Year
  Sex: Female
  Weight: 75.8 kg

DRUGS (5)
  1. INCB24360 [Suspect]
     Active Substance: EPACADOSTAT
     Indication: DIFFUSE LARGE B-CELL LYMPHOMA
     Dosage: 300 MG, BID
     Route: 048
     Dates: start: 20160527, end: 20160606
  2. LEVOTHYROXINE. [Concomitant]
     Active Substance: LEVOTHYROXINE
     Indication: PRODUCT USED FOR UNKNOWN INDICATION
     Dosage: UNK
     Route: 065
     Dates: start: 20100601
  3. INCB24360 [Suspect]
     Active Substance: EPACADOSTAT
     Dosage: 300 MG, BID
     Route: 048
     Dates: end: 20160621
  4. NASACORT [Concomitant]
     Active Substance: TRIAMCINOLONE ACETONIDE
     Indication: PRODUCT USED FOR UNKNOWN INDICATION
     Dosage: UNK
     Route: 065
     Dates: start: 20160527
  5. NIVOLUMAB [Suspect]
     Active Substance: NIVOLUMAB
     Indication: DIFFUSE LARGE B-CELL LYMPHOMA
     Dosage: 240 MG, Q2WK
     Route: 042
     Dates: start: 20160527, end: 20160621

REACTIONS (2)
  - Encephalopathy [Recovered/Resolved]
  - Rash maculo-papular [Recovered/Resolved]

NARRATIVE: CASE EVENT DATE: 20160604
